FAERS Safety Report 24615820 (Version 1)
Quarter: 2024Q4

REPORT INFORMATION
  Report Type: Spontaneous
  Country: US (occurrence: US)
  Receive Date: 20241113
  Receipt Date: 20241113
  Transmission Date: 20250115
  Serious: No
  Sender: GALDERMA
  Company Number: US-GALDERMA-US2024006072

PATIENT

DRUGS (2)
  1. AKLIEF [Suspect]
     Active Substance: TRIFAROTENE
     Indication: Sebaceous hyperplasia
     Dosage: 1 DOSAGE FORM
     Route: 061
  2. BICALUTAMIDE [Concomitant]
     Active Substance: BICALUTAMIDE
     Indication: Sebaceous hyperplasia

REACTIONS (2)
  - Skin irritation [Unknown]
  - Intentional product use issue [Recovered/Resolved]
